FAERS Safety Report 19576858 (Version 3)
Quarter: 2022Q4

REPORT INFORMATION
  Report Type: Spontaneous
  Country: DK (occurrence: DK)
  Receive Date: 20210719
  Receipt Date: 20221223
  Transmission Date: 20230113
  Serious: Yes (Hospitalization, Disabling)
  Sender: FDA-Public Use
  Company Number: None

PATIENT
  Age: 46 Year
  Sex: Male

DRUGS (3)
  1. ETOPOSIDE [Suspect]
     Active Substance: ETOPOSIDE
     Indication: Testicular cancer metastatic
     Dosage: DOSAGE: UNKNOWN DOSE INTERVAL STRENGTH: 20 MG/ML
     Dates: start: 20210111, end: 20210228
  2. CISPLATIN [Suspect]
     Active Substance: CISPLATIN
     Indication: Testicular cancer metastatic
     Dosage: DOSAGE: UNKNOWN DOSE INTERVAL STRENGTH: 1 MG/ML
     Dates: start: 20210111, end: 20210228
  3. BLEOMYCIN [Suspect]
     Active Substance: BLEOMYCIN SULFATE
     Indication: Testicular cancer metastatic
     Dosage: DOSAGE: UNKNOWN DOSE INTERVAL STRENGTH: 15000 IU.
     Dates: start: 20210111, end: 20210228

REACTIONS (13)
  - Oedema peripheral [Recovered/Resolved]
  - Cyanosis [Recovered/Resolved]
  - Thrombosis [Recovered/Resolved with Sequelae]
  - Pain in extremity [Recovered/Resolved]
  - Peripheral vascular disorder [Recovered/Resolved]
  - Musculoskeletal stiffness [Recovered/Resolved]
  - Livedo reticularis [Recovered/Resolved]
  - Muscle spasms [Recovered/Resolved]
  - Peripheral swelling [Recovered/Resolved]
  - Skin discolouration [Recovered/Resolved]
  - Hypoaesthesia [Recovered/Resolved]
  - Sensory disturbance [Recovered/Resolved]
  - Aortic thrombosis [Unknown]

NARRATIVE: CASE EVENT DATE: 20210101
